FAERS Safety Report 10149546 (Version 1)
Quarter: 2014Q2

REPORT INFORMATION
  Report Type: Spontaneous
  Country: US (occurrence: None)
  Receive Date: 20140501
  Receipt Date: 20140501
  Transmission Date: 20141212
  Serious: Yes (Other)
  Sender: FDA-Public Use
  Company Number: None

PATIENT
  Age: 20 Year
  Sex: Male
  Weight: 109.77 kg

DRUGS (1)
  1. AMOXICILLIN [Suspect]
     Indication: ENDODONTIC PROCEDURE
     Dosage: 28, FOUR TIMES DAILY, TAKEN BY MOUTH
     Route: 048

REACTIONS (1)
  - Aggression [None]
